FAERS Safety Report 6145920-5 (Version None)
Quarter: 2009Q2

REPORT INFORMATION
  Report Type: 
  Country: None (occurrence: None)
  Receive Date: 20090406
  Receipt Date: 20090406
  Transmission Date: 20091009
  Serious: No
  Sender: FDA-Public Use
  Company Number: None

PATIENT
  Sex: Female
  Weight: 85.2762 kg

DRUGS (1)
  1. BETASERON [Suspect]
     Indication: MULTIPLE SCLEROSIS
     Dosage: 0.3 MG EVERY OTHER DAY SUBCUT FROM: LAST WEEK OF OCT 2008
     Route: 058
     Dates: start: 20081001, end: 20090121

REACTIONS (1)
  - TRANSAMINASES INCREASED [None]
